FAERS Safety Report 18231322 (Version 3)
Quarter: 2021Q4

REPORT INFORMATION
  Report Type: Spontaneous
  Country: US (occurrence: US)
  Receive Date: 20200904
  Receipt Date: 20211125
  Transmission Date: 20220303
  Serious: Yes (Other)
  Sender: FDA-Public Use
  Company Number: US-GILEAD-2020-0493377

PATIENT
  Age: 23 Year
  Sex: Female

DRUGS (6)
  1. TRUVADA [Suspect]
     Active Substance: EMTRICITABINE\TENOFOVIR DISOPROXIL FUMARATE
     Indication: HIV infection
     Dosage: UNK
     Route: 048
     Dates: start: 20141219, end: 20150202
  2. TRUVADA [Suspect]
     Active Substance: EMTRICITABINE\TENOFOVIR DISOPROXIL FUMARATE
     Dosage: UNK
     Route: 048
     Dates: start: 2014, end: 2017
  3. LISINOPRIL [Concomitant]
     Active Substance: LISINOPRIL
     Indication: Proteinuria
     Dosage: UNK
     Route: 048
     Dates: start: 201711
  4. LISINOPRIL [Concomitant]
     Active Substance: LISINOPRIL
     Indication: Blood creatinine increased
  5. LISINOPRIL [Concomitant]
     Active Substance: LISINOPRIL
     Indication: Glomerular filtration rate decreased
  6. IRON [Concomitant]
     Active Substance: IRON
     Indication: Anaemia
     Dosage: UNK
     Route: 048
     Dates: start: 201711

REACTIONS (7)
  - Chronic kidney disease [Not Recovered/Not Resolved]
  - Acute kidney injury [Recovered/Resolved]
  - Hypokalaemia [Unknown]
  - Glomerular filtration rate decreased [Not Recovered/Not Resolved]
  - Anaemia [Not Recovered/Not Resolved]
  - Proteinuria [Not Recovered/Not Resolved]
  - Blood creatinine increased [Not Recovered/Not Resolved]

NARRATIVE: CASE EVENT DATE: 20170926
